FAERS Safety Report 11024672 (Version 1)
Quarter: 2015Q2

REPORT INFORMATION
  Report Type: Spontaneous
  Country: US (occurrence: US)
  Receive Date: 20150414
  Receipt Date: 20150414
  Transmission Date: 20150821
  Serious: Yes (Other)
  Sender: FDA-Public Use
  Company Number: US-JNJFOC-20140520182

PATIENT
  Sex: Female

DRUGS (1)
  1. NEUTROGENA NORWEGIAN FORMULA HAND CREAM [Suspect]
     Active Substance: COSMETICS
     Indication: PRODUCT USED FOR UNKNOWN INDICATION
     Route: 061

REACTIONS (1)
  - Neoplasm malignant [Not Recovered/Not Resolved]
